FAERS Safety Report 14153160 (Version 1)
Quarter: 2017Q4

REPORT INFORMATION
  Report Type: Spontaneous
  Country: US (occurrence: US)
  Receive Date: 20171102
  Receipt Date: 20171102
  Transmission Date: 20180321
  Serious: No
  Sender: FDA-Public Use
  Company Number: US-BAYER-2017-198234

PATIENT
  Age: 41 Year
  Sex: Female

DRUGS (11)
  1. BETASERON [Suspect]
     Active Substance: INTERFERON BETA-1B
     Indication: MULTIPLE SCLEROSIS
     Dosage: 0.25 MG, QOD
     Dates: start: 2016, end: 2016
  2. METOPROLOL SUCCINATE. [Concomitant]
     Active Substance: METOPROLOL SUCCINATE
  3. OXCARBAZEPINE. [Concomitant]
     Active Substance: OXCARBAZEPINE
  4. ESCITALOPRAM [Concomitant]
     Active Substance: ESCITALOPRAM OXALATE
     Dosage: 20 MG, UNK
  5. METOPROLOL. [Concomitant]
     Active Substance: METOPROLOL
     Dosage: 50 MG, UNK
  6. FOLIC ACID. [Concomitant]
     Active Substance: FOLIC ACID
     Dosage: 1 MG, UNK
  7. ESCITALOPRAM OXALATE. [Concomitant]
     Active Substance: ESCITALOPRAM OXALATE
  8. VITAMIN D [Concomitant]
     Active Substance: CHOLECALCIFEROL
  9. HYDROCHLOROTHIAZIDE. [Concomitant]
     Active Substance: HYDROCHLOROTHIAZIDE
     Dosage: 25 MG, UNK
  10. PREDNISONE. [Concomitant]
     Active Substance: PREDNISONE
  11. VITAMIN B12 [Concomitant]
     Active Substance: CYANOCOBALAMIN
     Dosage: 250 ?G, UNK

REACTIONS (1)
  - Depression [Recovered/Resolved]

NARRATIVE: CASE EVENT DATE: 2016
